FAERS Safety Report 12882107 (Version 1)
Quarter: 2016Q4

REPORT INFORMATION
  Report Type: Report from Study
  Country: GB (occurrence: GB)
  Receive Date: 20161025
  Receipt Date: 20161025
  Transmission Date: 20170207
  Serious: Yes (Other)
  Sender: FDA-Public Use
  Company Number: GB-MYLANLABS-2016M1045563

PATIENT

DRUGS (4)
  1. FLUDARABINE [Suspect]
     Active Substance: FLUDARABINE PHOSPHATE
     Indication: MYELOFIBROSIS
     Route: 065
  2. BUSULFAN. [Suspect]
     Active Substance: BUSULFAN
     Dosage: 1.6 MG/KG ON DAY -3
     Route: 042
  3. BUSULFAN. [Suspect]
     Active Substance: BUSULFAN
     Indication: MYELOFIBROSIS
     Dosage: 3.2 MG/KG ONCE DAILY, OVER 3 HOURS ON DAYS -5 AND -4 OVER 2 DAYS
     Route: 042
  4. ANTITHYMOCYTE IMMUNOGLOBULIN [Suspect]
     Active Substance: THYMOCYTE IMMUNE GLOBULIN NOS
     Indication: MYELOFIBROSIS
     Route: 065

REACTIONS (5)
  - Multiple organ dysfunction syndrome [Unknown]
  - Acute kidney injury [Unknown]
  - Venoocclusive liver disease [Recovered/Resolved]
  - Hepatic encephalopathy [Unknown]
  - Hepatorenal syndrome [Unknown]
